FAERS Safety Report 23224749 (Version 1)
Quarter: 2023Q4

REPORT INFORMATION
  Report Type: Report from Study
  Country: US (occurrence: US)
  Receive Date: 20231124
  Receipt Date: 20231124
  Transmission Date: 20240109
  Serious: No
  Sender: FDA-Public Use
  Company Number: US-002147023-NVSC2023US250340

PATIENT
  Sex: Male
  Weight: 71 kg

DRUGS (1)
  1. KYMRIAH [Suspect]
     Active Substance: TISAGENLECLEUCEL
     Indication: Acute lymphocytic leukaemia
     Dosage: 1.5E8 CAR-POSITIVE VIABLE T-CELLS (ONE SINGLE DOSE)
     Route: 042
     Dates: start: 20231024

REACTIONS (1)
  - Influenza [Unknown]
